FAERS Safety Report 11870441 (Version 1)
Quarter: 2015Q4

REPORT INFORMATION
  Report Type: Spontaneous
  Country: US (occurrence: US)
  Receive Date: 20151228
  Receipt Date: 20151228
  Transmission Date: 20160305
  Serious: Yes (Hospitalization, Other)
  Sender: FDA-Public Use
  Company Number: US-SA-2015SA010225

PATIENT
  Age: 67 Year
  Sex: Male
  Weight: 110.22 kg

DRUGS (16)
  1. ASPIRIN. [Suspect]
     Active Substance: ASPIRIN
     Route: 065
  2. ISOSORBIDE. [Concomitant]
     Active Substance: ISOSORBIDE
  3. GLIPIZIDE. [Concomitant]
     Active Substance: GLIPIZIDE
     Route: 048
  4. LANTUS [Concomitant]
     Active Substance: INSULIN GLARGINE
     Route: 058
  5. TORSEMIDE. [Concomitant]
     Active Substance: TORSEMIDE
  6. PLAVIX [Suspect]
     Active Substance: CLOPIDOGREL BISULFATE
     Route: 065
     Dates: start: 20140609
  7. SERTRALINE [Concomitant]
     Active Substance: SERTRALINE HYDROCHLORIDE
  8. LISINOPRIL. [Concomitant]
     Active Substance: LISINOPRIL
  9. ZOCOR [Concomitant]
     Active Substance: SIMVASTATIN
  10. FLAGYL [Concomitant]
     Active Substance: METRONIDAZOLE\METRONIDAZOLE HYDROCHLORIDE
     Route: 042
     Dates: start: 20140614, end: 20140616
  11. COUMADINE [Suspect]
     Active Substance: WARFARIN SODIUM
     Route: 065
     Dates: end: 20140614
  12. HUMALOG [Concomitant]
     Active Substance: INSULIN LISPRO
     Dosage: AS PER SLIDING SCALE
     Route: 058
  13. COREG [Concomitant]
     Active Substance: CARVEDILOL
  14. TESTOSTERONE. [Concomitant]
     Active Substance: TESTOSTERONE
  15. LIPITOR [Concomitant]
     Active Substance: ATORVASTATIN CALCIUM
  16. LEVAQUIN [Concomitant]
     Active Substance: LEVOFLOXACIN
     Route: 042
     Dates: start: 20140614, end: 20140616

REACTIONS (7)
  - Melaena [Recovered/Resolved]
  - Colitis ischaemic [Recovered/Resolved]
  - Rectal haemorrhage [Recovered/Resolved]
  - Diarrhoea [Recovered/Resolved]
  - Abdominal pain lower [Recovered/Resolved]
  - Nausea [Recovered/Resolved]
  - Haematochezia [Recovered/Resolved]

NARRATIVE: CASE EVENT DATE: 20140614
